FAERS Safety Report 5129094-5 (Version None)
Quarter: 2006Q4

REPORT INFORMATION
  Report Type: 
  Country: None (occurrence: None)
  Receive Date: 20061016
  Receipt Date: 20061016
  Transmission Date: 20070319
  Serious: No
  Sender: FDA-Public Use
  Company Number: None

PATIENT
  Sex: Female
  Weight: 86.1834 kg

DRUGS (1)
  1. OXYCODONE AND ACETAMINOPHEN [Suspect]
     Indication: BLADDER REPAIR
     Dates: start: 20061003, end: 20061005

REACTIONS (4)
  - DIZZINESS [None]
  - PRURITUS [None]
  - SKIN DISORDER [None]
  - SWELLING [None]
